FAERS Safety Report 8494254-2 (Version None)
Quarter: 2012Q2

REPORT INFORMATION
  Report Type: 
  Country: None (occurrence: None)
  Receive Date: 20120627
  Receipt Date: 20120617
  Transmission Date: 20120825
  Serious: Yes (Other)
  Sender: FDA-Public Use
  Company Number: 2012SP034224

PATIENT
  Sex: Male

DRUGS (3)
  1. NOXAFIL [Suspect]
     Indication: PRODUCT USED FOR UNKNOWN INDICATION
  2. ACYCLOVIR [Concomitant]
  3. SEPTRA [Concomitant]

REACTIONS (2)
  - NEUROPATHY PERIPHERAL [None]
  - NEOPLASM MALIGNANT [None]
